FAERS Safety Report 7746252-1 (Version None)
Quarter: 2011Q3

REPORT INFORMATION
  Report Type: 
  Country: None (occurrence: None)
  Receive Date: 20110913
  Receipt Date: 20110906
  Transmission Date: 20111222
  Serious: Yes (Life-Threatening, Hospitalization)
  Sender: FDA-Public Use
  Company Number: JP-BRISTOL-MYERS SQUIBB COMPANY-16042582

PATIENT
  Age: 47 Year
  Sex: Female

DRUGS (2)
  1. ABILIFY [Suspect]
     Indication: SCHIZOPHRENIA
     Dosage: ABILIFY TABS 6MG
     Route: 048
  2. ROHYPNOL [Suspect]
     Dosage: TABS
     Route: 048

REACTIONS (2)
  - ILEUS [None]
  - NEUROLEPTIC MALIGNANT SYNDROME [None]
